FAERS Safety Report 7176611-X (Version None)
Quarter: 2010Q4

REPORT INFORMATION
  Report Type: 
  Country: None (occurrence: None)
  Receive Date: 20101220
  Receipt Date: 20101206
  Transmission Date: 20110411
  Serious: Yes (Hospitalization)
  Sender: FDA-Public Use
  Company Number: PHHY2009JP23785

PATIENT
  Age: 27 Year
  Sex: Female

DRUGS (3)
  1. VOLTAREN [Suspect]
     Indication: BACK PAIN
     Dosage: 75MG DAILY
     Route: 048
     Dates: start: 20000101
  2. MYONAL [Concomitant]
     Indication: BACK PAIN
     Dosage: 15 MG, UNK
     Route: 048
     Dates: start: 20000101
  3. KETOTIFEN FUMARATE [Concomitant]
     Indication: PHARYNGITIS
     Route: 048

REACTIONS (9)
  - BLOOD LACTATE DEHYDROGENASE INCREASED [None]
  - COUGH [None]
  - DYSPNOEA [None]
  - INTERSTITIAL LUNG DISEASE [None]
  - LYMPHOCYTE STIMULATION TEST POSITIVE [None]
  - PRODUCTIVE COUGH [None]
  - RALES [None]
  - TRAUMATIC LUNG INJURY [None]
  - WHITE BLOOD CELL COUNT INCREASED [None]
